FAERS Safety Report 8082041-9 (Version None)
Quarter: 2012Q1

REPORT INFORMATION
  Report Type: 
  Country: None (occurrence: None)
  Receive Date: 20120130
  Receipt Date: 20120125
  Transmission Date: 20120608
  Serious: Yes (Hospitalization, Disabling)
  Sender: FDA-Public Use
  Company Number: GB-ALLERGAN-1201102US

PATIENT
  Age: 72 Year
  Sex: Male

DRUGS (9)
  1. WARFARIN SODIUM [Concomitant]
  2. PERINDOPRIL ERBUMINE [Concomitant]
  3. THIAMINE HCL [Concomitant]
  4. BOTULINUM TOXIN TYPE A [Suspect]
     Indication: MUSCLE SPASTICITY
  5. BOTULINUM TOXIN TYPE A [Suspect]
     Indication: PAIN
     Dosage: 200 UNITS, SINGLE
     Route: 030
     Dates: start: 20111018, end: 20111018
  6. BOTULINUM TOXIN TYPE A [Suspect]
     Indication: PRODUCT USED FOR UNKNOWN INDICATION
  7. PLACEBO [Suspect]
     Indication: PAIN
     Dosage: 200 UNITS, SINGLE
     Route: 030
     Dates: start: 20111018, end: 20111018
  8. PLACEBO [Suspect]
     Indication: MUSCLE SPASTICITY
  9. PLACEBO [Suspect]
     Indication: PRODUCT USED FOR UNKNOWN INDICATION

REACTIONS (1)
  - CEREBROVASCULAR ACCIDENT [None]
